FAERS Safety Report 16600122 (Version 2)
Quarter: 2020Q1

REPORT INFORMATION
  Report Type: Spontaneous
  Country: NZ (occurrence: NZ)
  Receive Date: 20190719
  Receipt Date: 20200127
  Transmission Date: 20200409
  Serious: Yes (Death, Hospitalization)
  Sender: FDA-Public Use
  Company Number: NZ-MYLANLABS-2019M1068212

PATIENT
  Sex: Male

DRUGS (14)
  1. TIOTROPIUM [Concomitant]
     Active Substance: TIOTROPIUM
     Dosage: 18 MICROGRAM, QD
     Dates: start: 20170303, end: 20190714
  2. LACTULOSE. [Concomitant]
     Active Substance: LACTULOSE
     Dosage: 20 MILLILITER, BID
     Route: 048
     Dates: start: 20170119, end: 20190714
  3. AMISULPRIDE [Concomitant]
     Active Substance: AMISULPRIDE
     Dosage: 300 MILLIGRAM, PM
     Route: 048
     Dates: start: 20170120, end: 20190714
  4. LAXSOL [Concomitant]
     Active Substance: DOCUSATE SODIUM\SENNOSIDES A AND B
     Dosage: UNK, PM 3 TABS
     Route: 048
     Dates: start: 20170120, end: 20190714
  5. PREDNISONE. [Concomitant]
     Active Substance: PREDNISONE
     Dosage: 40 MILLIGRAM, QD FOR 6/7
     Route: 048
  6. THEOPHYLLINE [Concomitant]
     Active Substance: THEOPHYLLINE ANHYDROUS
     Dosage: 250 MILLIGRAM, BID
     Route: 048
     Dates: start: 20170120, end: 20190714
  7. AUGMENTIN [Concomitant]
     Active Substance: AMOXICILLIN\CLAVULANATE POTASSIUM
     Dosage: 625 MILLIGRAM, TID FOR 6/7
     Route: 048
  8. MOLAXOLE [Concomitant]
     Active Substance: POLYETHYLENE GLYCOL 3350\POTASSIUM CHLORIDE\SODIUM BICARBONATE\SODIUM CHLORIDE
     Dosage: UNK, BID 2 SACHETS
     Route: 048
     Dates: start: 20170221, end: 20190714
  9. SYMBICORT [Concomitant]
     Active Substance: BUDESONIDE\FORMOTEROL FUMARATE DIHYDRATE
     Dosage: UNK, BID 200/6 PUFFS
     Dates: start: 20170501, end: 20190714
  10. ATORVASTATIN [Concomitant]
     Active Substance: ATORVASTATIN
     Dosage: 40 MILLIGRAM, PM
     Route: 048
     Dates: start: 20170120, end: 20190714
  11. LAXSOL [Concomitant]
     Active Substance: DOCUSATE SODIUM\SENNOSIDES A AND B
     Dosage: UNK, QD 1-2 TABLETS DAILY, AS NEEDED
     Route: 048
  12. SALBUTAMOL [Concomitant]
     Active Substance: ALBUTEROL
     Dosage: 2.5 MILLIGRAM, Q2H/PRN
     Dates: start: 20170508, end: 20190714
  13. CLOZARIL [Suspect]
     Active Substance: CLOZAPINE
     Indication: SCHIZOPHRENIA
     Dosage: 225 MILLIGRAM, PM
     Route: 048
     Dates: start: 20140516, end: 20190714
  14. BISACODYL. [Concomitant]
     Active Substance: BISACODYL
     Dosage: 5 MILLIGRAM, PM
     Route: 048
     Dates: start: 20170120, end: 20190714

REACTIONS (3)
  - Respiratory failure [Fatal]
  - Infective exacerbation of chronic obstructive airways disease [Fatal]
  - Pickwickian syndrome [Fatal]
